FAERS Safety Report 13244418 (Version 1)
Quarter: 2017Q1

REPORT INFORMATION
  Report Type: Spontaneous
  Country: US (occurrence: US)
  Receive Date: 20170217
  Receipt Date: 20170217
  Transmission Date: 20170428
  Serious: No
  Sender: FDA-Public Use
  Company Number: None

PATIENT
  Age: 67 Year
  Sex: Female

DRUGS (1)
  1. PROLIA [Suspect]
     Active Substance: DENOSUMAB
     Dosage: 60MG EVERY 6 MONTHS SQ
     Route: 058

REACTIONS (2)
  - Back pain [None]
  - Ear discomfort [None]

NARRATIVE: CASE EVENT DATE: 20170217
